FAERS Safety Report 25539221 (Version 1)
Quarter: 2025Q3

REPORT INFORMATION
  Report Type: Spontaneous
  Country: US (occurrence: US)
  Receive Date: 20250710
  Receipt Date: 20250710
  Transmission Date: 20251020
  Serious: No
  Sender: ABBVIE
  Company Number: US-ABBVIE-6362621

PATIENT
  Sex: Male

DRUGS (1)
  1. RISANKIZUMAB [Suspect]
     Active Substance: RISANKIZUMAB
     Indication: Psoriatic arthropathy
     Route: 058

REACTIONS (3)
  - Injection site induration [Unknown]
  - Injection site bruising [Unknown]
  - Psoriatic arthropathy [Unknown]
